FAERS Safety Report 9860390 (Version 1)
Quarter: 2014Q1

REPORT INFORMATION
  Report Type: Spontaneous
  Country: US (occurrence: US)
  Receive Date: 20140202
  Receipt Date: 20140202
  Transmission Date: 20141002
  Serious: Yes (Death)
  Sender: FDA-Public Use
  Company Number: CHPA2014US001548

PATIENT
  Age: 43 Year
  Sex: Male

DRUGS (8)
  1. ACETAMINOPHEN (PARACETAMOL) [Suspect]
     Route: 048
  2. ACETAMINOPHEN (PARACETAMOL) [Suspect]
     Dosage: UNK
     Route: 055
  3. OXYCODONE [Suspect]
     Route: 048
  4. OXYCODONE [Suspect]
     Dosage: UNK
     Route: 055
  5. CHLORDIAZEPOXIDE [Suspect]
     Route: 048
  6. CHLORDIAZEPOXIDE [Suspect]
     Dosage: UNK
     Route: 055
  7. PAROXETINE [Suspect]
     Route: 048
  8. PAROXETINE [Suspect]
     Dosage: UNK
     Route: 055

REACTIONS (1)
  - Intentional drug misuse [Fatal]
